FAERS Safety Report 17203231 (Version 1)
Quarter: 2019Q4

REPORT INFORMATION
  Report Type: Spontaneous
  Country: CA (occurrence: CA)
  Receive Date: 20191226
  Receipt Date: 20191226
  Transmission Date: 20200122
  Serious: Yes (Hospitalization)
  Sender: FDA-Public Use
  Company Number: CA-TEVA-2019-CA-1157307

PATIENT
  Age: 52 Year
  Sex: Female

DRUGS (11)
  1. OLANZAPINE. [Suspect]
     Active Substance: OLANZAPINE
     Indication: SCHIZOPHRENIA
     Dosage: 15 MILLIGRAM DAILY;
  2. CLONAZEPAM. [Concomitant]
     Active Substance: CLONAZEPAM
  3. METHYLPREDNISONE [Suspect]
     Active Substance: METHYLPREDNISOLONE
     Dosage: 1000 MILLIGRAM DAILY;
     Route: 042
  4. COGENTIN [Concomitant]
     Active Substance: BENZTROPINE MESYLATE
  5. OLANZAPINE. [Suspect]
     Active Substance: OLANZAPINE
     Indication: PSYCHOTIC DISORDER
  6. IVIG [Suspect]
     Active Substance: HUMAN IMMUNOGLOBULIN G
  7. ZOPICLONE [Concomitant]
     Active Substance: ZOPICLONE
  8. CIPRALEX [Concomitant]
     Active Substance: ESCITALOPRAM OXALATE
  9. HALDOL [Concomitant]
     Active Substance: HALOPERIDOL
  10. BUPROPION. [Concomitant]
     Active Substance: BUPROPION
  11. LORAZEPAM. [Concomitant]
     Active Substance: LORAZEPAM

REACTIONS (10)
  - Eosinophil count abnormal [Recovering/Resolving]
  - Aspartate aminotransferase increased [Recovering/Resolving]
  - Haemoglobin urine [Recovering/Resolving]
  - Red blood cells urine [Recovering/Resolving]
  - Alanine aminotransferase increased [Recovering/Resolving]
  - Glomerular filtration rate decreased [Recovering/Resolving]
  - White blood cells urine positive [Recovering/Resolving]
  - Rash [Recovering/Resolving]
  - Pyrexia [Recovering/Resolving]
  - Encephalitis autoimmune [Recovering/Resolving]
